FAERS Safety Report 6882406-4 (Version None)
Quarter: 2010Q3

REPORT INFORMATION
  Report Type: 
  Country: None (occurrence: None)
  Receive Date: 20100729
  Receipt Date: 20100305
  Transmission Date: 20110219
  Serious: Yes (Death, Other)
  Sender: FDA-Public Use
  Company Number: JP-BAYER-200914710BYL

PATIENT
  Age: 67 Year
  Sex: Male
  Weight: 57 kg

DRUGS (14)
  1. NEXAVAR [Suspect]
     Indication: HEPATIC NEOPLASM MALIGNANT
     Dosage: UNIT DOSE: 200 MG
     Route: 048
     Dates: start: 20090825, end: 20090922
  2. NEXAVAR [Suspect]
     Dosage: UNIT DOSE: 200 MG
     Route: 048
     Dates: start: 20090929, end: 20091013
  3. URSO 250 [Concomitant]
     Route: 048
     Dates: start: 20090109
  4. LACTULOSE [Concomitant]
     Route: 048
     Dates: start: 20090109
  5. TAKEPRON [Concomitant]
     Route: 048
     Dates: start: 20090109
  6. MUCOSTA [Concomitant]
     Route: 048
     Dates: start: 20090109
  7. TENORMIN [Concomitant]
     Route: 048
     Dates: start: 20090109
  8. AMINOLEBAN EN [Concomitant]
     Route: 048
     Dates: start: 20090109
  9. VOGLIBOSE [Concomitant]
     Route: 048
     Dates: start: 20090109
  10. ACTOS [Concomitant]
     Route: 048
     Dates: start: 20090109
  11. LULICON:CREAM [Concomitant]
     Indication: PROPHYLAXIS
     Route: 061
     Dates: start: 20090818
  12. UREPEARL [Concomitant]
     Indication: PROPHYLAXIS
     Route: 061
     Dates: start: 20090818
  13. PROPETO [Concomitant]
     Indication: PROPHYLAXIS
     Route: 061
     Dates: start: 20090818
  14. BICRONOL [Concomitant]
     Route: 061
     Dates: start: 20090818

REACTIONS (3)
  - HEPATIC FUNCTION ABNORMAL [None]
  - HEPATIC NEOPLASM MALIGNANT [None]
  - LIVER DISORDER [None]
